FAERS Safety Report 19907622 (Version 1)
Quarter: 2021Q3

REPORT INFORMATION
  Report Type: Spontaneous
  Country: US (occurrence: US)
  Receive Date: 20210930
  Receipt Date: 20210930
  Transmission Date: 20211014
  Serious: No
  Sender: FDA-Public Use
  Company Number: US-SEATTLE GENETICS-2021SGN03929

PATIENT
  Age: 23 Year
  Sex: Female

DRUGS (1)
  1. ADCETRIS [Suspect]
     Active Substance: BRENTUXIMAB VEDOTIN
     Indication: PRODUCT USED FOR UNKNOWN INDICATION
     Dosage: 78 MG
     Route: 041
     Dates: start: 20210707

REACTIONS (5)
  - Pruritus [Unknown]
  - Vomiting [Unknown]
  - Urticaria [Unknown]
  - Nausea [Unknown]
  - Throat tightness [Unknown]

NARRATIVE: CASE EVENT DATE: 20210721
